FAERS Safety Report 10155843 (Version 2)
Quarter: 2014Q2

REPORT INFORMATION
  Report Type: Report from Study
  Country: FR (occurrence: FR)
  Receive Date: 20140506
  Receipt Date: 20140506
  Transmission Date: 20141212
  Serious: Yes (Hospitalization, Other)
  Sender: FDA-Public Use
  Company Number: PHHY2014FR050721

PATIENT
  Sex: Male

DRUGS (3)
  1. LDK378 [Suspect]
     Indication: LUNG NEOPLASM MALIGNANT
     Dosage: UNK UKN, UNK
     Dates: start: 201308, end: 201312
  2. LDK378 [Suspect]
     Indication: METASTASES TO CENTRAL NERVOUS SYSTEM
     Dosage: UNK UKN, UNK
     Dates: start: 201401
  3. INNOHEP [Concomitant]
     Indication: CEREBRAL THROMBOSIS
     Dosage: UNK (FOR 2 YEARS) UKN, UNK

REACTIONS (7)
  - Thrombocytopenia [Recovered/Resolved]
  - Cerebral thrombosis [Recovered/Resolved]
  - Condition aggravated [Unknown]
  - General physical health deterioration [Unknown]
  - Neurological symptom [Recovered/Resolved]
  - Lung neoplasm malignant [Unknown]
  - Malignant neoplasm progression [Unknown]
